FAERS Safety Report 14148774 (Version 1)
Quarter: 2017Q4

REPORT INFORMATION
  Report Type: Spontaneous
  Country: US (occurrence: US)
  Receive Date: 20171101
  Receipt Date: 20171101
  Transmission Date: 20180321
  Serious: No
  Sender: FDA-Public Use
  Company Number: US-GLAXOSMITHKLINE-US2017164727

PATIENT
  Sex: Female

DRUGS (1)
  1. TRANSDERM SCOP [Suspect]
     Active Substance: SCOPOLAMINE
     Indication: PREOPERATIVE CARE
     Dosage: UNK
     Dates: start: 20171017, end: 20171019

REACTIONS (4)
  - Disorientation [Unknown]
  - Tremor [Unknown]
  - Nervousness [Unknown]
  - Emergency care [Unknown]

NARRATIVE: CASE EVENT DATE: 20171019
